FAERS Safety Report 17308207 (Version 6)
Quarter: 2020Q1

REPORT INFORMATION
  Report Type: Report from Study
  Country: RU (occurrence: RU)
  Receive Date: 20200123
  Receipt Date: 20200213
  Transmission Date: 20200409
  Serious: Yes (Death, Life-Threatening, Hospitalization)
  Sender: FDA-Public Use
  Company Number: RU-EISAI MEDICAL RESEARCH-EC-2020-068767

PATIENT
  Age: 76 Year
  Sex: Male
  Weight: 91 kg

DRUGS (12)
  1. CALCIUM D3 NYCOMED [Concomitant]
     Dates: start: 20191129
  2. DIUVER [Concomitant]
     Active Substance: TORSEMIDE
     Dates: start: 201501
  3. NUTRIEN HEPA [Concomitant]
     Dates: start: 20191129
  4. LOZAP [Concomitant]
     Dates: start: 201101
  5. PLACEBO [Suspect]
     Active Substance: UNSPECIFIED INGREDIENT
     Route: 041
     Dates: start: 20191225, end: 20191225
  6. AMLODIPINE [Concomitant]
     Active Substance: AMLODIPINE BESYLATE
     Dates: start: 201101
  7. NOLPAZA [Concomitant]
     Active Substance: PANTOPRAZOLE SODIUM
     Dates: start: 20190330
  8. INSULIN [Concomitant]
     Active Substance: INSULIN NOS
     Dates: start: 201201
  9. PANANGIN [Concomitant]
     Active Substance: MAGNESIUM ASPARTATE\POTASSIUM ASPARTATE
     Dates: start: 20191127
  10. LENVATINIB [Suspect]
     Active Substance: LENVATINIB
     Indication: HEPATOCELLULAR CARCINOMA
     Route: 048
     Dates: start: 20190426, end: 20200115
  11. PLACEBO [Suspect]
     Active Substance: UNSPECIFIED INGREDIENT
     Indication: HEPATOCELLULAR CARCINOMA
     Route: 041
     Dates: start: 20190426, end: 20191205
  12. CLEXANE [Concomitant]
     Active Substance: ENOXAPARIN SODIUM
     Dates: start: 20190426

REACTIONS (2)
  - Proctitis [Recovered/Resolved]
  - Cerebrovascular accident [Fatal]

NARRATIVE: CASE EVENT DATE: 20200115
